FAERS Safety Report 13052356 (Version 2)
Quarter: 2017Q1

REPORT INFORMATION
  Report Type: Report from Study
  Country: US (occurrence: US)
  Receive Date: 20161221
  Receipt Date: 20170206
  Transmission Date: 20170428
  Serious: Yes (Death, Hospitalization)
  Sender: FDA-Public Use
  Company Number: US-ACTELION-A-US2016-147129

PATIENT
  Age: 68 Year
  Sex: Female

DRUGS (11)
  1. LIPITOR [Concomitant]
     Active Substance: ATORVASTATIN CALCIUM
     Dosage: 20 MG, QD
     Route: 048
     Dates: start: 20160901
  2. KLOR-CON [Concomitant]
     Active Substance: POTASSIUM CHLORIDE
     Dosage: 10 MEQ, QD
     Route: 048
     Dates: start: 20160901
  3. VITAMIN D3 [Concomitant]
     Active Substance: CHOLECALCIFEROL
  4. OXYGEN. [Concomitant]
     Active Substance: OXYGEN
  5. LASIX [Concomitant]
     Active Substance: FUROSEMIDE
     Dosage: 40 MG, BID
     Route: 042
     Dates: start: 20160901
  6. TOPROL XL [Concomitant]
     Active Substance: METOPROLOL SUCCINATE
     Dosage: 12.5 MG, QD
     Dates: start: 20160901
  7. OPSUMIT [Suspect]
     Active Substance: MACITENTAN
     Indication: PULMONARY ARTERIAL HYPERTENSION
     Dosage: 10 MG, QD
     Route: 048
     Dates: start: 20140923
  8. ADEMPAS [Concomitant]
     Active Substance: RIOCIGUAT
     Dosage: 2 MG, BID
     Route: 048
  9. PRINIVIL [Concomitant]
     Active Substance: LISINOPRIL
     Dosage: 2.5 MG, QD
     Dates: start: 20160901
  10. XARELTO [Concomitant]
     Active Substance: RIVAROXABAN
     Dosage: 15 MG, QPM
     Dates: start: 20151231
  11. TREPROSTINIL [Concomitant]
     Active Substance: TREPROSTINIL
     Dosage: 9 PUFF, QID
     Dates: start: 20150701

REACTIONS (17)
  - Cardiac failure congestive [Unknown]
  - Haemorrhage [Unknown]
  - Packed red blood cell transfusion [Unknown]
  - Pleural effusion [Unknown]
  - Hyperkalaemia [Unknown]
  - Renal tubular necrosis [Unknown]
  - Blood creatinine increased [Unknown]
  - Anaemia [Unknown]
  - Tachycardia [Unknown]
  - Renal failure [Unknown]
  - Cardiorenal syndrome [Unknown]
  - Dyspnoea [Unknown]
  - Acute respiratory failure [Unknown]
  - Brain natriuretic peptide increased [Unknown]
  - Cardio-respiratory arrest [Fatal]
  - Arrhythmia [Fatal]
  - Respiratory failure [Unknown]

NARRATIVE: CASE EVENT DATE: 20161107
